FAERS Safety Report 8184777-8 (Version None)
Quarter: 2012Q1

REPORT INFORMATION
  Report Type: 
  Country: None (occurrence: None)
  Receive Date: 20120305
  Receipt Date: 20120305
  Transmission Date: 20120608
  Serious: Yes (Other)
  Sender: FDA-Public Use
  Company Number: None

PATIENT
  Age: 43 Year
  Sex: Female
  Weight: 54.431 kg

DRUGS (1)
  1. LUPRON [Suspect]
     Indication: ENDOMETRIOSIS
     Dosage: 3.75MG
     Route: 030
     Dates: start: 20090901, end: 20100201

REACTIONS (7)
  - AUTONOMIC NEUROPATHY [None]
  - HYPERHIDROSIS [None]
  - BONE PAIN [None]
  - ANHEDONIA [None]
  - COGNITIVE DISORDER [None]
  - FEELING ABNORMAL [None]
  - OVARIAN FAILURE [None]
